FAERS Safety Report 6361621-2 (Version None)
Quarter: 2009Q3

REPORT INFORMATION
  Report Type: 
  Country: None (occurrence: None)
  Receive Date: 20090918
  Receipt Date: 20090915
  Transmission Date: 20100115
  Serious: Yes (Life-Threatening, Other)
  Sender: FDA-Public Use
  Company Number: PHHY2009JP33187

PATIENT
  Sex: Male

DRUGS (5)
  1. VOLTAREN [Suspect]
     Dosage: UNK
     Route: 048
     Dates: end: 20090731
  2. VOLTAREN [Suspect]
     Indication: VERTEBRAL INJURY
     Dosage: 50 MG, ONCE/SINGLE
     Route: 048
     Dates: start: 20090731, end: 20090731
  3. TEGRETOL [Suspect]
     Indication: VERTEBRAL INJURY
     Dosage: 200MG DAILY
     Route: 048
     Dates: end: 20090731
  4. MECOBALAMIN [Suspect]
     Indication: VERTEBRAL INJURY
     Dosage: 1500MG DAILY
     Route: 048
     Dates: end: 20090731
  5. MUCOSTA [Suspect]
     Dosage: 3 TABLET DAILY
     Route: 048
     Dates: end: 20090731

REACTIONS (12)
  - ALANINE AMINOTRANSFERASE INCREASED [None]
  - ANAPHYLACTIC REACTION [None]
  - ASPARTATE AMINOTRANSFERASE INCREASED [None]
  - BLOOD ALKALINE PHOSPHATASE INCREASED [None]
  - BLOOD GLUCOSE INCREASED [None]
  - DYSPNOEA [None]
  - FAECAL INCONTINENCE [None]
  - GAMMA-GLUTAMYLTRANSFERASE INCREASED [None]
  - PRURITUS [None]
  - RASH GENERALISED [None]
  - SYNCOPE [None]
  - URTICARIA [None]
